FAERS Safety Report 4809973-6 (Version None)
Quarter: 2005Q4

REPORT INFORMATION
  Report Type: 
  Country: None (occurrence: None)
  Receive Date: 20051024
  Receipt Date: 20051024
  Transmission Date: 20060501
  Serious: Yes (Other)
  Sender: FDA-Public Use
  Company Number: None

PATIENT
  Sex: Male
  Weight: 97.5234 kg

DRUGS (7)
  1. LISINOPRIL [Suspect]
     Indication: HYPERTENSION
     Dosage: 2.5MG   DAILY   PO
     Route: 048
     Dates: start: 20050908, end: 20051018
  2. CHLORPHENIRAMINE MALEATE [Concomitant]
  3. OMEPRAZOLE [Concomitant]
  4. DILTIAZEM [Concomitant]
  5. AZMACORT [Concomitant]
  6. ALBUTEROL [Concomitant]
  7. ATROVENT [Concomitant]

REACTIONS (3)
  - ANGIONEUROTIC OEDEMA [None]
  - DRUG HYPERSENSITIVITY [None]
  - SIMILAR REACTION ON PREVIOUS EXPOSURE TO DRUG [None]
